FAERS Safety Report 4695691-4 (Version None)
Quarter: 2005Q2

REPORT INFORMATION
  Report Type: 
  Country: None (occurrence: None)
  Receive Date: 20050621
  Receipt Date: 20050617
  Transmission Date: 20051028
  Serious: Yes (Hospitalization)
  Sender: FDA-Public Use
  Company Number: PHBS2005SE08708

PATIENT
  Age: 19 Year
  Sex: Male

DRUGS (5)
  1. RITALIN [Suspect]
     Indication: DISTURBANCE IN ATTENTION
     Dosage: 40 MG/D
     Route: 048
  2. IKTORIVIL [Concomitant]
     Dosage: 10 MG/D
     Route: 065
     Dates: start: 20050602
  3. SEROQUEL [Concomitant]
     Dosage: 200 MG/D
     Route: 065
     Dates: start: 20050602
  4. PROPAVAN [Concomitant]
     Route: 065
     Dates: start: 20050520
  5. RISPERDAL [Concomitant]
     Route: 065
     Dates: end: 20050530

REACTIONS (1)
  - MANIA [None]
